FAERS Safety Report 6665347-7 (Version None)
Quarter: 2010Q1

REPORT INFORMATION
  Report Type: 
  Country: None (occurrence: None)
  Receive Date: 20100331
  Receipt Date: 20100315
  Transmission Date: 20100710
  Serious: Yes (Other)
  Sender: FDA-Public Use
  Company Number: CL-78-2010

PATIENT

DRUGS (1)
  1. FLAGYL [Suspect]

REACTIONS (1)
  - MENINGITIS ASEPTIC [None]
